FAERS Safety Report 10378525 (Version 1)
Quarter: 2014Q3

REPORT INFORMATION
  Report Type: Spontaneous
  Country: US (occurrence: None)
  Receive Date: 20140811
  Receipt Date: 20140811
  Transmission Date: 20150326
  Serious: Yes (Disabling)
  Sender: FDA-Public Use
  Company Number: None

PATIENT
  Age: 49 Year
  Sex: Female
  Weight: 124.74 kg

DRUGS (2)
  1. CIPRO [Suspect]
     Active Substance: CIPROFLOXACIN HYDROCHLORIDE
  2. LEVAQUIN [Suspect]
     Active Substance: LEVOFLOXACIN
     Route: 048

REACTIONS (14)
  - Psychotic disorder [None]
  - Mental impairment [None]
  - Muscle spasms [None]
  - Hallucination [None]
  - Rotator cuff syndrome [None]
  - Muscle contractions involuntary [None]
  - Tendon disorder [None]
  - Occipital neuralgia [None]
  - Tendon rupture [None]
  - Toxicity to various agents [None]
  - Musculoskeletal pain [None]
  - Memory impairment [None]
  - Hemiparesis [None]
  - Migraine [None]

NARRATIVE: CASE EVENT DATE: 20140102
